FAERS Safety Report 14013910 (Version 1)
Quarter: 2017Q3

REPORT INFORMATION
  Report Type: Spontaneous
  Country: US (occurrence: BR)
  Receive Date: 20170926
  Receipt Date: 20170926
  Transmission Date: 20171128
  Serious: Yes (Other)
  Sender: FDA-Public Use
  Company Number: US-SUNOVION-2017SUN004182

PATIENT
  Age: 18 Year
  Sex: Female
  Weight: 55 kg

DRUGS (4)
  1. OXIMAX [Concomitant]
     Active Substance: MOMETASONE FUROATE
     Dosage: 400 ?G, UNK
     Dates: start: 2017
  2. XOLAIR [Suspect]
     Active Substance: OMALIZUMAB
     Indication: ASTHMA
     Dosage: 525 MG, BIW
     Route: 058
     Dates: start: 201708
  3. GLYCOPYRROLATE. [Suspect]
     Active Substance: GLYCOPYRROLATE
     Indication: ASTHMA
     Dosage: 50 ?G, QD
     Route: 055
     Dates: start: 2017
  4. BECLOMETASONE DIPROPIONATE [Concomitant]
     Active Substance: BECLOMETHASONE DIPROPIONATE
     Dosage: 10/6 UG
     Dates: start: 2017

REACTIONS (3)
  - Oropharyngeal pain [Recovered/Resolved]
  - Spirometry abnormal [Recovering/Resolving]
  - Headache [Recovered/Resolved]

NARRATIVE: CASE EVENT DATE: 201702
